FAERS Safety Report 16009296 (Version 3)
Quarter: 2019Q2

REPORT INFORMATION
  Report Type: Spontaneous
  Country: US (occurrence: US)
  Receive Date: 20190226
  Receipt Date: 20190617
  Transmission Date: 20190711
  Serious: No
  Sender: FDA-Public Use
  Company Number: US-BRISTOL-MYERS SQUIBB COMPANY-BMS-2019-019109

PATIENT
  Age: 64 Year
  Sex: Female

DRUGS (1)
  1. ORENCIA [Suspect]
     Active Substance: ABATACEPT
     Indication: PRODUCT USED FOR UNKNOWN INDICATION
     Dosage: 125 MG, QWK
     Route: 058

REACTIONS (7)
  - Abdominal pain upper [Unknown]
  - Nausea [Unknown]
  - Oropharyngeal pain [Unknown]
  - Muscle tightness [Unknown]
  - Ear pain [Unknown]
  - Back disorder [Unknown]
  - Pain [Unknown]

NARRATIVE: CASE EVENT DATE: 20190207
